FAERS Safety Report 5569908-8 (Version None)
Quarter: 2007Q4

REPORT INFORMATION
  Report Type: 
  Country: None (occurrence: None)
  Receive Date: 20071220
  Receipt Date: 20071205
  Transmission Date: 20080405
  Serious: Yes (Other)
  Sender: FDA-Public Use
  Company Number: FR-GENENTECH-252623

PATIENT
  Sex: Female

DRUGS (6)
  1. AVASTIN [Suspect]
     Indication: COLORECTAL CANCER
     Dosage: 250 MG, UNK
  2. AVASTIN [Suspect]
     Dosage: 200 MG, UNK
  3. FLUOROURACIL [Concomitant]
     Indication: COLORECTAL CANCER
  4. FOLINIC ACID [Concomitant]
     Indication: COLORECTAL CANCER
  5. IRINOTECAN HCL [Concomitant]
     Indication: COLORECTAL CANCER
  6. CORTICOSTEROIDS (UNK INGREDIENTS) [Concomitant]
     Indication: PREMEDICATION

REACTIONS (1)
  - ANAPHYLACTIC REACTION [None]
